FAERS Safety Report 6289083-4 (Version None)
Quarter: 2009Q3

REPORT INFORMATION
  Report Type: 
  Country: None (occurrence: None)
  Receive Date: 20090729
  Receipt Date: 20090722
  Transmission Date: 20100115
  Serious: Yes (Life-Threatening, Hospitalization)
  Sender: FDA-Public Use
  Company Number: DK-ASTRAZENECA-2009SE05472

PATIENT
  Age: 27125 Day
  Sex: Female
  Weight: 65 kg

DRUGS (3)
  1. SEROQUEL [Suspect]
     Indication: DEPRESSION
     Route: 048
     Dates: start: 20090115, end: 20090319
  2. NORTRIPTYLINE HYDROCHLORIDE [Interacting]
     Indication: DEPRESSION
     Dates: start: 20050101, end: 20090319
  3. LAMOTRIGIN [Interacting]
     Dates: start: 20090126, end: 20090319

REACTIONS (3)
  - DRUG INTERACTION [None]
  - LEUKOPENIA [None]
  - PYREXIA [None]
